FAERS Safety Report 7148573-2 (Version None)
Quarter: 2010Q4

REPORT INFORMATION
  Report Type: 
  Country: None (occurrence: None)
  Receive Date: 20101126
  Receipt Date: 20101112
  Transmission Date: 20110411
  Serious: Yes (Hospitalization)
  Sender: FDA-Public Use
  Company Number: 2010BI035853

PATIENT
  Age: 61 Year
  Sex: Male

DRUGS (8)
  1. ZEVALIN [Suspect]
     Indication: NON-HODGKIN'S LYMPHOMA RECURRENT
     Dosage: 0.4 MCI/KG;1X;IV
     Route: 042
     Dates: start: 20090831, end: 20090831
  2. ZEVALIN [Suspect]
     Indication: STEM CELL TRANSPLANT
     Dosage: 0.4 MCI/KG;1X;IV
     Route: 042
     Dates: start: 20090831, end: 20090831
  3. RITUXIMAB [Concomitant]
  4. FLUDARABINE PHOSPHATE [Concomitant]
  5. BUSULFAN [Concomitant]
  6. THYMOGLOBULIN [Concomitant]
  7. CYCLOSPORINE [Concomitant]
  8. PREV MEDS [Concomitant]

REACTIONS (7)
  - BRONCHOPULMONARY ASPERGILLOSIS [None]
  - DRUG TOXICITY [None]
  - HUMAN HERPES VIRUS 6 SEROLOGY POSITIVE [None]
  - LYMPHOCYTOSIS [None]
  - MEDICAL DEVICE COMPLICATION [None]
  - RESPIRATORY TRACT INFECTION VIRAL [None]
  - STAPHYLOCOCCAL INFECTION [None]
